FAERS Safety Report 19619929 (Version 1)
Quarter: 2021Q3

REPORT INFORMATION
  Report Type: Spontaneous
  Country: US (occurrence: US)
  Receive Date: 20210727
  Receipt Date: 20210727
  Transmission Date: 20211014
  Serious: No
  Sender: FDA-Public Use
  Company Number: US-GLENMARK PHARMACEUTICALS-2021GMK054029

PATIENT

DRUGS (3)
  1. INDOMETHACIN. [Suspect]
     Active Substance: INDOMETHACIN
     Indication: PSORIATIC ARTHROPATHY
     Dosage: UNK
     Route: 065
  2. INDOMETHACIN EXTENDED RELEASE CAPSULES USP, 75 MG [Suspect]
     Active Substance: INDOMETHACIN
     Indication: PSORIATIC ARTHROPATHY
     Dosage: 150 MILLIGRAM, BID
     Route: 065
     Dates: start: 20210324, end: 20210424
  3. OTEZLA [Concomitant]
     Active Substance: APREMILAST
     Indication: PSORIATIC ARTHROPATHY
     Dosage: 60 MILLIGRAM, QD
     Route: 048
     Dates: start: 20210324

REACTIONS (10)
  - Drug intolerance [Unknown]
  - Nausea [Recovered/Resolved]
  - Product use in unapproved indication [Unknown]
  - Psychomotor hyperactivity [Unknown]
  - Nervousness [Unknown]
  - Headache [Recovered/Resolved]
  - Agitation [Unknown]
  - Feeling jittery [Unknown]
  - Allergic reaction to excipient [Unknown]
  - Blood glucose decreased [Unknown]

NARRATIVE: CASE EVENT DATE: 20210324
